FAERS Safety Report 12591591 (Version 1)
Quarter: 2016Q3

REPORT INFORMATION
  Report Type: Other
  Country: US (occurrence: US)
  Receive Date: 20160726
  Receipt Date: 20160726
  Transmission Date: 20161109
  Serious: Yes (Other)
  Sender: FDA-Public Use
  Company Number: US-SHIRE-US201605805

PATIENT
  Age: 73 Year
  Sex: Female

DRUGS (2)
  1. PENTASA [Suspect]
     Active Substance: MESALAMINE
     Indication: COLITIS ULCERATIVE
     Dosage: 500 MG (8 CAPS), UNKNOWN (A DAY)
     Route: 048
     Dates: start: 201508, end: 2016
  2. PENTASA [Suspect]
     Active Substance: MESALAMINE
     Dosage: UNK
     Route: 048
     Dates: start: 2016

REACTIONS (6)
  - Drug ineffective [Unknown]
  - Diarrhoea [Unknown]
  - Nausea [Unknown]
  - Colitis ulcerative [Unknown]
  - Gastrointestinal haemorrhage [Unknown]
  - Chills [Unknown]

NARRATIVE: CASE EVENT DATE: 201508
